FAERS Safety Report 6783977-9 (Version None)
Quarter: 2010Q2

REPORT INFORMATION
  Report Type: 
  Country: None (occurrence: None)
  Receive Date: 20100622
  Receipt Date: 20100219
  Transmission Date: 20101027
  Serious: No
  Sender: FDA-Public Use
  Company Number: US-BRISTOL-MYERS SQUIBB COMPANY-14906424

PATIENT
  Age: 88 Year
  Sex: Male

DRUGS (3)
  1. SINEMET [Suspect]
     Indication: PARKINSON'S DISEASE
     Dosage: 2 DF= 2 TABS. JUL08-27NV09. 28NV09-UNK.LOT# X5339:EXP DATE-08/2011.LOT# Y2143: EXP DATE-03/2012.
     Route: 048
     Dates: start: 20080701
  2. EXELON [Concomitant]
  3. ARICEPT [Concomitant]

REACTIONS (1)
  - HALLUCINATION [None]
